FAERS Safety Report 25191895 (Version 1)
Quarter: 2025Q2

REPORT INFORMATION
  Report Type: Spontaneous
  Country: US (occurrence: US)
  Receive Date: 20250414
  Receipt Date: 20250414
  Transmission Date: 20250716
  Serious: No
  Sender: AMGEN
  Company Number: US-AMGEN-USASP2025069549

PATIENT
  Age: 63 Year
  Sex: Female

DRUGS (9)
  1. PROLIA [Suspect]
     Active Substance: DENOSUMAB
     Indication: Osteoporosis postmenopausal
     Dosage: UNK UNK, Q6MO
     Route: 065
     Dates: start: 20250401
  2. Vitamin D3 K2 [Concomitant]
  3. OMEGA 3 [Concomitant]
     Active Substance: CAPSAICIN
  4. VITAMIN C [Concomitant]
     Active Substance: ASCORBIC ACID
  5. VITAMIN B12 [Concomitant]
     Active Substance: CYANOCOBALAMIN
  6. ALLEGRA [Concomitant]
     Active Substance: FEXOFENADINE HYDROCHLORIDE
  7. FLONASE [Concomitant]
     Active Substance: FLUTICASONE PROPIONATE
  8. RESTASIS [Concomitant]
     Active Substance: CYCLOSPORINE
  9. ASPIRIN [Concomitant]
     Active Substance: ASPIRIN

REACTIONS (2)
  - Urinary tract infection [Recovering/Resolving]
  - Influenza like illness [Recovered/Resolved]

NARRATIVE: CASE EVENT DATE: 20250403
